FAERS Safety Report 8187395-0 (Version None)
Quarter: 2012Q1

REPORT INFORMATION
  Report Type: 
  Country: None (occurrence: None)
  Receive Date: 20120306
  Receipt Date: 20120227
  Transmission Date: 20120608
  Serious: Yes (Hospitalization)
  Sender: FDA-Public Use
  Company Number: US-BAYER-2011-040457

PATIENT
  Age: 30 Year
  Sex: Female
  Weight: 86 kg

DRUGS (5)
  1. YAZ [Suspect]
     Indication: ACNE
     Dosage: UNK
     Dates: start: 20090410, end: 20090418
  2. ISONIAZID [Concomitant]
  3. AMOXICILLIN [Concomitant]
     Dosage: UNK
     Dates: start: 20000101, end: 20090101
  4. IBUPROFEN (ADVIL) [Concomitant]
     Dosage: UNK
     Dates: start: 20080101, end: 20110101
  5. MAXALT [Concomitant]
     Dosage: UNK
     Dates: start: 20050101, end: 20110101

REACTIONS (7)
  - DYSPNOEA [None]
  - PULMONARY EMBOLISM [None]
  - CHEST PAIN [None]
  - PAIN [None]
  - ANXIETY [None]
  - ANHEDONIA [None]
  - THROMBOSIS [None]
